FAERS Safety Report 14535218 (Version 1)
Quarter: 2018Q1

REPORT INFORMATION
  Report Type: Spontaneous
  Country: US (occurrence: US)
  Receive Date: 20180214
  Receipt Date: 20180214
  Transmission Date: 20180509
  Serious: Yes (Other)
  Sender: FDA-Public Use
  Company Number: None

PATIENT
  Sex: Male
  Weight: 75.6 kg

DRUGS (5)
  1. GABAPETIN [Concomitant]
     Active Substance: GABAPENTIN
  2. AVONEX [Suspect]
     Active Substance: INTERFERON BETA-1A
     Indication: MULTIPLE SCLEROSIS
     Dosage: ?          OTHER FREQUENCY:ONCE WEEKLY;?
     Route: 030
     Dates: start: 20180202
  3. IBUPROFEN. [Concomitant]
     Active Substance: IBUPROFEN
  4. ALBUTEROL HFA [Concomitant]
     Active Substance: ALBUTEROL SULFATE
  5. MOMETASONE [Concomitant]
     Active Substance: MOMETASONE

REACTIONS (2)
  - Seizure [None]
  - Condition aggravated [None]
